FAERS Safety Report 21275245 (Version 8)
Quarter: 2022Q4

REPORT INFORMATION
  Report Type: Report from Study
  Country: KR (occurrence: None)
  Receive Date: 20220831
  Receipt Date: 20221219
  Transmission Date: 20230113
  Serious: Yes (Hospitalization)
  Sender: FDA-Public Use
  Company Number: KR-Eisai Medical Research-EC-2022-122370

PATIENT
  Age: 69 Year
  Sex: Male
  Weight: 57 kg

DRUGS (16)
  1. LENVATINIB [Suspect]
     Active Substance: LENVATINIB
     Indication: Hepatocellular carcinoma
     Dosage: STARTING DOSE AT 12 MG QD, FLUCTUATED DOSAGE
     Route: 048
     Dates: start: 20220426, end: 20220730
  2. PEMBROLIZUMAB [Suspect]
     Active Substance: PEMBROLIZUMAB
     Indication: Hepatocellular carcinoma
     Route: 041
     Dates: start: 20220426, end: 20220607
  3. ETHIODIZED OIL [Suspect]
     Active Substance: ETHIODIZED OIL
     Indication: Hepatocellular carcinoma
     Dosage: UNKNOWN DOSE AND FREQUENCY
     Dates: start: 20220510, end: 20220818
  4. TENOFOVIR DISOPROXIL [Concomitant]
     Active Substance: TENOFOVIR DISOPROXIL
     Dates: start: 20121226
  5. ORABITEN [Concomitant]
     Dates: start: 20210902
  6. ALLEGRA [Concomitant]
     Active Substance: FEXOFENADINE HYDROCHLORIDE
     Dates: start: 20220531
  7. TOPISOL MILK LOTION [Concomitant]
     Dates: start: 20220714
  8. XYZAL [Concomitant]
     Active Substance: LEVOCETIRIZINE DIHYDROCHLORIDE
     Dates: start: 20220714
  9. HYDROXYZINE HYDROCHLORIDE [Concomitant]
     Active Substance: HYDROXYZINE HYDROCHLORIDE
     Dates: start: 20220714
  10. TWOLION [Concomitant]
     Dates: start: 20220714
  11. HARTMANS SOLUTION [Concomitant]
     Route: 042
     Dates: start: 20220818, end: 20220818
  12. MECKOOL [Concomitant]
     Route: 042
     Dates: start: 20220818, end: 20220818
  13. MEPERIDINE HYDROCHLORIDE [Concomitant]
     Active Substance: MEPERIDINE HYDROCHLORIDE
     Route: 058
     Dates: start: 20220818, end: 20220818
  14. LIDOCAINE [Concomitant]
     Active Substance: LIDOCAINE
     Route: 058
     Dates: start: 20220818, end: 20220818
  15. ELECTROLYTES NOS;SODIUM LACTATE [Concomitant]
     Dates: start: 20220818, end: 20220818
  16. MEPERIDINE HYDROCHLORIDE [Concomitant]
     Active Substance: MEPERIDINE HYDROCHLORIDE
     Dates: start: 20220818, end: 20220818

REACTIONS (1)
  - Nephritis [Not Recovered/Not Resolved]

NARRATIVE: CASE EVENT DATE: 20220822
